FAERS Safety Report 10489758 (Version 3)
Quarter: 2015Q1

REPORT INFORMATION
  Report Type: Report from Study
  Country: JP (occurrence: JP)
  Receive Date: 20141002
  Receipt Date: 20150116
  Transmission Date: 20150720
  Serious: Yes (Death)
  Sender: FDA-Public Use
  Company Number: JP-PFIZER INC-2014266840

PATIENT
  Age: 43 Year
  Sex: Female
  Weight: 62.5 kg

DRUGS (6)
  1. TEMSIROLIMUS [Suspect]
     Active Substance: TEMSIROLIMUS
     Dosage: 25 MG, WEEKLY
     Route: 041
     Dates: start: 20120224, end: 20120224
  2. TEMSIROLIMUS [Suspect]
     Active Substance: TEMSIROLIMUS
     Dosage: 25 MG, WEEKLY
     Route: 041
     Dates: start: 20120306, end: 20120306
  3. POLARAMINE [Concomitant]
     Active Substance: DEXCHLORPHENIRAMINE MALEATE
     Indication: PROPHYLAXIS
     Dosage: 2 MG, 1X/DAY (FOR EACH TEMSIROLIMUS ADMINISTRATION)
     Route: 048
  4. TEMSIROLIMUS [Suspect]
     Active Substance: TEMSIROLIMUS
     Dosage: 25 MG, WEEKLY
     Route: 041
     Dates: start: 20120313, end: 20120313
  5. TEMSIROLIMUS [Suspect]
     Active Substance: TEMSIROLIMUS
     Indication: ANGIOMYOLIPOMA
     Dosage: 25 MG, WEEKLY
     Route: 041
     Dates: start: 20120217, end: 20120217
  6. SELBEX [Concomitant]
     Active Substance: TEPRENONE
     Indication: PROPHYLAXIS
     Dosage: 150 MG, 3X/DAY
     Route: 048
     Dates: start: 20120218, end: 20120329

REACTIONS (1)
  - Sepsis [Fatal]

NARRATIVE: CASE EVENT DATE: 20120319
